FAERS Safety Report 4806847-1 (Version None)
Quarter: 2005Q4

REPORT INFORMATION
  Report Type: 
  Country: None (occurrence: None)
  Receive Date: 20051019
  Receipt Date: 20051010
  Transmission Date: 20060501
  Serious: Yes (Disabling)
  Sender: FDA-Public Use
  Company Number: 2005141301

PATIENT
  Age: 75 Year
  Sex: Female

DRUGS (4)
  1. PROVERA [Suspect]
     Indication: BREAST CANCER FEMALE
     Dosage: 500 MG (500 MG, 1 IN 1 D); 250 MG (250 MG, 1 IN 1 D)
     Dates: start: 19970101
  2. TEGRETOL [Concomitant]
  3. FELODIPINE [Concomitant]
  4. LOSEC (OMEPRAZOLE) [Concomitant]

REACTIONS (7)
  - ACTIVITIES OF DAILY LIVING IMPAIRED [None]
  - DIFFICULTY IN WALKING [None]
  - LYMPHOEDEMA [None]
  - PAIN IN EXTREMITY [None]
  - PRURITUS [None]
  - SELF-MEDICATION [None]
  - WEIGHT INCREASED [None]
